FAERS Safety Report 9233134 (Version 1)
Quarter: 2013Q2

REPORT INFORMATION
  Report Type: Spontaneous
  Country: IT (occurrence: IT)
  Receive Date: 20130416
  Receipt Date: 20130416
  Transmission Date: 20140414
  Serious: Yes (Other)
  Sender: FDA-Public Use
  Company Number: PHHY2013IT036518

PATIENT
  Age: 82 Year
  Sex: Female

DRUGS (1)
  1. ZOMETA [Suspect]
     Indication: METASTASIS
     Dosage: 1 DF (1 POSOLOGIC UNIT), MONTHLY
     Route: 042
     Dates: start: 20070101, end: 20101216

REACTIONS (1)
  - Osteonecrosis of jaw [Unknown]
